FAERS Safety Report 4405822-9 (Version None)
Quarter: 2004Q3

REPORT INFORMATION
  Report Type: 
  Country: None (occurrence: None)
  Receive Date: 20040723
  Receipt Date: 20040105
  Transmission Date: 20050211
  Serious: No
  Sender: FDA-Public Use
  Company Number: US-GLAXOSMITHKLINE-A0491305A

PATIENT
  Age: 50 Year
  Sex: Male

DRUGS (5)
  1. AVANDIA [Suspect]
     Dosage: 8MG PER DAY
     Route: 048
     Dates: start: 20031201
  2. UNSPECIFIED MEDICATION [Concomitant]
  3. GLUCOTROL XL [Concomitant]
  4. DIOVAN HCT [Concomitant]
  5. LOTENSIN [Concomitant]

REACTIONS (1)
  - MYALGIA [None]
